FAERS Safety Report 10401742 (Version 1)
Quarter: 2014Q3

REPORT INFORMATION
  Report Type: Spontaneous
  Country: US (occurrence: None)
  Receive Date: 20140820
  Receipt Date: 20140820
  Transmission Date: 20150326
  Serious: Yes (Hospitalization)
  Sender: FDA-Public Use
  Company Number: None

PATIENT
  Age: 70 Year
  Sex: Male
  Weight: 112 kg

DRUGS (2)
  1. BENICAR [Concomitant]
     Active Substance: OLMESARTAN MEDOXOMIL
  2. CISPLATIN. [Suspect]
     Active Substance: CISPLATIN

REACTIONS (2)
  - Renal failure acute [None]
  - Blood creatinine increased [None]

NARRATIVE: CASE EVENT DATE: 20140815
